FAERS Safety Report 7684188-5 (Version None)
Quarter: 2011Q3

REPORT INFORMATION
  Report Type: 
  Country: None (occurrence: None)
  Receive Date: 20110815
  Receipt Date: 20110803
  Transmission Date: 20111222
  Serious: Yes (Death)
  Sender: FDA-Public Use
  Company Number: US-BAYER-201036363NA

PATIENT
  Age: 51 Year
  Sex: Female
  Weight: 64 kg

DRUGS (31)
  1. OMNISCAN [Suspect]
  2. AMLODIPINE [Concomitant]
  3. ITRACONAZOLE [Concomitant]
  4. KEPPRA [Concomitant]
  5. CAPTOPRIL [Concomitant]
  6. MAGNEVIST [Suspect]
     Indication: NUCLEAR MAGNETIC RESONANCE IMAGING BRAIN
     Route: 042
     Dates: start: 20060629, end: 20060629
  7. DIATX [Concomitant]
  8. FERRLECIT [Concomitant]
  9. UNSPECIFIED GADOLINIUM [Suspect]
     Dosage: UNK
     Dates: start: 20040706, end: 20040706
  10. ACETYLSALICYLIC ACID SRT [Concomitant]
  11. PREDNISONE [Concomitant]
  12. TUMS E-X [Concomitant]
  13. EPOGEN [Concomitant]
  14. LAMICTAL [Concomitant]
  15. METOPROLOL TARTRATE [Concomitant]
  16. UNSPECIFIED GADOLINIUM [Suspect]
     Indication: NUCLEAR MAGNETIC RESONANCE IMAGING BRAIN
     Dosage: UNK
     Dates: start: 20040601, end: 20040601
  17. DILANTIN [Concomitant]
  18. LEVETIRACETAM [Concomitant]
  19. FERROUS SULFATE TAB [Concomitant]
  20. VALPROIC ACID [Concomitant]
  21. SEVELAMER [Concomitant]
  22. RENAGEL [Concomitant]
  23. CLONIDINE [Concomitant]
  24. ZEMPLAR [Concomitant]
  25. UNSPECIFIED GADOLINIUM [Suspect]
     Dosage: UNK
     Dates: start: 20041223, end: 20041223
  26. UNSPECIFIED GADOLINIUM [Suspect]
     Dosage: UNK
     Dates: start: 20050108, end: 20050108
  27. UNSPECIFIED GADOLINIUM [Suspect]
     Dosage: UNK
     Dates: start: 20050227, end: 20050227
  28. OPTIMARK [Suspect]
     Dosage: UNK
  29. CYTOXAN [Concomitant]
  30. LISINOPRIL [Concomitant]
  31. EPOGEN [Concomitant]

REACTIONS (14)
  - DRY SKIN [None]
  - MUSCULOSKELETAL STIFFNESS [None]
  - MOBILITY DECREASED [None]
  - OEDEMA PERIPHERAL [None]
  - SKIN EXFOLIATION [None]
  - HYPERKERATOSIS [None]
  - MUSCLE CONTRACTURE [None]
  - OEDEMA [None]
  - SKIN HYPERTROPHY [None]
  - EXTREMITY CONTRACTURE [None]
  - SKIN INDURATION [None]
  - SKIN PLAQUE [None]
  - NEPHROGENIC SYSTEMIC FIBROSIS [None]
  - JOINT RANGE OF MOTION DECREASED [None]
